FAERS Safety Report 11200196 (Version 1)
Quarter: 2015Q2

REPORT INFORMATION
  Report Type: Spontaneous
  Country: CH (occurrence: CH)
  Receive Date: 20150618
  Receipt Date: 20150618
  Transmission Date: 20150821
  Serious: Yes (Hospitalization)
  Sender: FDA-Public Use
  Company Number: CH-JNJFOC-20150612750

PATIENT
  Age: 85 Year
  Sex: Female

DRUGS (7)
  1. XARELTO [Suspect]
     Active Substance: RIVAROXABAN
     Indication: CEREBROVASCULAR ACCIDENT PROPHYLAXIS
     Route: 048
     Dates: start: 201502, end: 20150404
  2. DIPIPERON [Suspect]
     Active Substance: PIPAMPERONE
     Indication: PRODUCT USED FOR UNKNOWN INDICATION
     Route: 065
     Dates: end: 2015
  3. BILOL [Suspect]
     Active Substance: BISOPROLOL
     Indication: HYPERTENSION
     Dosage: 12.5 MG/5 MG
     Route: 048
     Dates: end: 201504
  4. TIMOPTIC [Concomitant]
     Active Substance: TIMOLOL MALEATE
     Indication: CATARACT OPERATION
     Route: 065
     Dates: start: 20150217
  5. ATORVASTATIN [Suspect]
     Active Substance: ATORVASTATIN
     Indication: PERIPHERAL VENOUS DISEASE
     Route: 048
     Dates: start: 201502, end: 20150404
  6. METFORMIN [Suspect]
     Active Substance: METFORMIN HYDROCHLORIDE
     Indication: TYPE 2 DIABETES MELLITUS
     Route: 048
     Dates: start: 201502, end: 20150404
  7. XARELTO [Suspect]
     Active Substance: RIVAROXABAN
     Indication: ATRIAL FIBRILLATION
     Route: 048
     Dates: start: 201502, end: 20150404

REACTIONS (5)
  - Decreased appetite [Recovering/Resolving]
  - Night sweats [Recovering/Resolving]
  - Liver disorder [Recovering/Resolving]
  - Jaundice cholestatic [Recovering/Resolving]
  - Hepatomegaly [Recovering/Resolving]

NARRATIVE: CASE EVENT DATE: 20150404
